FAERS Safety Report 23574678 (Version 1)
Quarter: 2024Q1

REPORT INFORMATION
  Report Type: Spontaneous
  Country: GB (occurrence: None)
  Receive Date: 20240228
  Receipt Date: 20240228
  Transmission Date: 20240409
  Serious: Yes (Hospitalization)
  Sender: FDA-Public Use
  Company Number: GB-ROCHE-3507248

PATIENT
  Age: 82 Year
  Sex: Female

DRUGS (5)
  1. TOCILIZUMAB [Suspect]
     Active Substance: TOCILIZUMAB
     Indication: Rheumatoid arthritis
     Route: 058
  2. TOCILIZUMAB [Suspect]
     Active Substance: TOCILIZUMAB
     Dosage: /JAN/2024
     Route: 058
  3. MEBEVERINE [Concomitant]
     Active Substance: MEBEVERINE
  4. ACETAMINOPHEN [Concomitant]
     Active Substance: ACETAMINOPHEN
  5. SPIRONOLACTONE [Concomitant]
     Active Substance: SPIRONOLACTONE

REACTIONS (1)
  - Peripheral swelling [Not Recovered/Not Resolved]

NARRATIVE: CASE EVENT DATE: 20230101
